FAERS Safety Report 9767071 (Version 1)
Quarter: 2013Q4

REPORT INFORMATION
  Report Type: Spontaneous
  Country: US (occurrence: US)
  Receive Date: 20131217
  Receipt Date: 20131217
  Transmission Date: 20140711
  Serious: No
  Sender: FDA-Public Use
  Company Number: US-GLAXOSMITHKLINE-A1038226A

PATIENT
  Age: 55 Year
  Sex: Male
  Weight: 94.5 kg

DRUGS (1)
  1. VOTRIENT [Suspect]
     Indication: SARCOMA
     Dosage: 800MG PER DAY
     Route: 048
     Dates: start: 20130627

REACTIONS (5)
  - Nausea [Recovered/Resolved]
  - Diarrhoea [Recovered/Resolved]
  - Gastrointestinal disorder [Recovered/Resolved]
  - Ageusia [Recovered/Resolved]
  - Hair colour changes [Recovered/Resolved]
